FAERS Safety Report 6827484-3 (Version None)
Quarter: 2010Q3

REPORT INFORMATION
  Report Type: 
  Country: None (occurrence: None)
  Receive Date: 20100709
  Receipt Date: 20070118
  Transmission Date: 20110219
  Serious: No
  Sender: FDA-Public Use
  Company Number: US-PFIZER INC-2007005315

PATIENT
  Age: 34 Year
  Sex: Female
  Weight: 95.25 kg

DRUGS (2)
  1. CHANTIX [Suspect]
     Indication: SMOKING CESSATION THERAPY
     Dates: start: 20061201, end: 20070117
  2. LEVOXYL [Concomitant]
     Indication: THYROID DISORDER

REACTIONS (2)
  - ARTHRALGIA [None]
  - FEELING ABNORMAL [None]
